FAERS Safety Report 6716653-9 (Version None)
Quarter: 2010Q2

REPORT INFORMATION
  Report Type: 
  Country: None (occurrence: None)
  Receive Date: 20100509
  Receipt Date: 20100429
  Transmission Date: 20101027
  Serious: Yes (Other)
  Sender: FDA-Public Use
  Company Number: US-BRISTOL-MYERS SQUIBB COMPANY-15084551

PATIENT
  Sex: Male

DRUGS (3)
  1. ONGLYZA [Suspect]
  2. ACTOS [Concomitant]
  3. GLYBURIDE [Concomitant]

REACTIONS (1)
  - MACULAR OEDEMA [None]
